FAERS Safety Report 9559750 (Version 1)
Quarter: 2013Q3

REPORT INFORMATION
  Report Type: Spontaneous
  Country: US (occurrence: US)
  Receive Date: 20130927
  Receipt Date: 20130927
  Transmission Date: 20140515
  Serious: Yes (Death)
  Sender: FDA-Public Use
  Company Number: US-SANOFI-AVENTIS-2013SA094743

PATIENT
  Age: 62 Year
  Sex: Male

DRUGS (5)
  1. LANTUS SOLOSTAR [Suspect]
     Indication: TYPE 2 DIABETES MELLITUS
     Dosage: START DATE: 1 YEAR
     Route: 065
     Dates: end: 2011
  2. JANUVIA [Suspect]
     Route: 065
  3. BYETTA [Suspect]
     Route: 065
  4. NOVOLOG [Suspect]
     Route: 065
  5. SOLOSTAR [Concomitant]
     Indication: TYPE 2 DIABETES MELLITUS
     Dates: end: 2011

REACTIONS (1)
  - Pancreatic carcinoma [Fatal]
